FAERS Safety Report 6495007-7 (Version None)
Quarter: 2009Q4

REPORT INFORMATION
  Report Type: 
  Country: None (occurrence: None)
  Receive Date: 20091214
  Receipt Date: 20090420
  Transmission Date: 20100525
  Serious: No
  Sender: FDA-Public Use
  Company Number: US-BRISTOL-MYERS SQUIBB COMPANY-14594741

PATIENT
  Age: 16 Year
  Sex: Male

DRUGS (2)
  1. ABILIFY [Suspect]
     Dosage: TAKEN 3 DOSES
     Dates: start: 20090418
  2. CELEXA [Suspect]
     Indication: DEPRESSION

REACTIONS (1)
  - DYSTONIA [None]
